FAERS Safety Report 6315666-9 (Version None)
Quarter: 2009Q3

REPORT INFORMATION
  Report Type: 
  Country: None (occurrence: None)
  Receive Date: 20090818
  Receipt Date: 20090805
  Transmission Date: 20100115
  Serious: Yes (Hospitalization)
  Sender: FDA-Public Use
  Company Number: DSU-2009-01594

PATIENT
  Age: 62 Year
  Sex: Female
  Weight: 93.8946 kg

DRUGS (3)
  1. WELCHOL (COLESEVELAM HYDROCHLORIDE) (625 MILLIGRAM, TABLET) [Suspect]
     Indication: HYPERCHOLESTEROLAEMIA
     Dosage: 2500 MG (1250 MG, BID), PER ORAL
     Route: 048
     Dates: start: 20090601, end: 20090721
  2. OTHER UNSPECIFIED DRUGS (ALL OTHER THERAPEUTIC PRODUCTS) [Concomitant]
  3. NIACIN (NICOTINIC ACID) (NICOTINIC ACID) [Concomitant]

REACTIONS (3)
  - BLOOD CREATINE PHOSPHOKINASE INCREASED [None]
  - FATIGUE [None]
  - MUSCULAR WEAKNESS [None]
